FAERS Safety Report 6407724-5 (Version None)
Quarter: 2009Q4

REPORT INFORMATION
  Report Type: 
  Country: None (occurrence: None)
  Receive Date: 20091020
  Receipt Date: 20091012
  Transmission Date: 20100525
  Serious: Yes (Hospitalization)
  Sender: FDA-Public Use
  Company Number: DE-AVENTIS-200912595DE

PATIENT

DRUGS (3)
  1. DOCETAXEL [Suspect]
     Dosage: DOSE: NOT REPORTED
     Route: 042
     Dates: start: 20090807, end: 20090807
  2. CAPECITABINE [Suspect]
     Dosage: DOSE: NOT REPORTED
     Route: 048
     Dates: start: 20090807, end: 20090807
  3. CISPLATIN [Suspect]
     Dosage: DOSE: NOT REPORTED
     Route: 042
     Dates: start: 20090807, end: 20090807

REACTIONS (1)
  - SOPOR [None]
